FAERS Safety Report 5116789-2 (Version None)
Quarter: 2006Q3

REPORT INFORMATION
  Report Type: 
  Country: None (occurrence: None)
  Receive Date: 20060925
  Receipt Date: 20060911
  Transmission Date: 20061208
  Serious: Yes (Other)
  Sender: FDA-Public Use
  Company Number: 2006111030

PATIENT
  Age: 71 Year
  Sex: Male
  Weight: 102.0593 kg

DRUGS (9)
  1. LYRICA [Suspect]
     Indication: DIABETIC NEUROPATHY
     Dosage: 200 MG (100 MG, 2 IN 1 D), UNKNOWN
     Dates: start: 20060101, end: 20060101
  2. LIPITOR [Concomitant]
  3. NEURONTIN [Concomitant]
  4. LEXAPRO [Concomitant]
  5. ALLOPURINOL [Concomitant]
  6. ENALAPRIL MALEATE [Concomitant]
  7. ASPIRIN [Concomitant]
  8. AVANDIA [Concomitant]
  9. NORVASC [Concomitant]

REACTIONS (8)
  - AGEUSIA [None]
  - ANAEMIA [None]
  - BLOOD PRESSURE INADEQUATELY CONTROLLED [None]
  - CONJUNCTIVITIS [None]
  - NERVE INJURY [None]
  - RENAL IMPAIRMENT [None]
  - TONGUE DISORDER [None]
  - WEIGHT DECREASED [None]
